FAERS Safety Report 9315742 (Version 1)
Quarter: 2013Q2

REPORT INFORMATION
  Report Type: Report from Study
  Country: BR (occurrence: BR)
  Receive Date: 20130529
  Receipt Date: 20130529
  Transmission Date: 20140414
  Serious: Yes (Other)
  Sender: FDA-Public Use
  Company Number: BR-B.I. PHARMACEUTICALS,INC./RIDGEFIELD-2013-BI-13855GD

PATIENT
  Age: 76 Year
  Sex: Female

DRUGS (6)
  1. PRAMIPEXOLE [Suspect]
     Indication: PARKINSON^S DISEASE
     Dosage: 3 MG
  2. LEVODOPA BENSERAZIDE [Suspect]
     Indication: PARKINSON^S DISEASE
     Dosage: STRENGTH: LEVODOPA-BENSERAZIDE 250 MG/25 MG, 5 TIMES/DAY
     Route: 048
  3. NORTRIPTYLINE [Suspect]
     Indication: PARKINSON^S DISEASE
     Dosage: 50 MG
  4. CLONAZEPAM [Suspect]
     Indication: PARKINSON^S DISEASE
     Dosage: 0.5 MG
  5. QUETIAPINE [Suspect]
     Indication: PARKINSON^S DISEASE
     Dosage: 50 MG
  6. DONEPEZIL [Suspect]
     Indication: PARKINSON^S DISEASE
     Dosage: 5 MG

REACTIONS (3)
  - Compulsive hoarding [Unknown]
  - Hallucination, visual [Unknown]
  - Poor personal hygiene [Unknown]
